FAERS Safety Report 4465299-4 (Version None)
Quarter: 2004Q3

REPORT INFORMATION
  Report Type: 
  Country: None (occurrence: None)
  Receive Date: 20040929
  Receipt Date: 20031107
  Transmission Date: 20050211
  Serious: No
  Sender: FDA-Public Use
  Company Number: 2003UW13162

PATIENT
  Age: 47 Year
  Sex: Female
  Weight: 72.5755 kg

DRUGS (7)
  1. RHINOCORT [Suspect]
     Indication: SINUS CONGESTION
     Dosage: 64 UG QD IN
     Route: 055
     Dates: start: 20030731, end: 20030801
  2. CLARITIN-D [Suspect]
     Indication: HYPERSENSITIVITY
     Dosage: 1 TAB ORAL
     Route: 048
     Dates: start: 20030731, end: 20030801
  3. CLARITIN-D [Suspect]
     Indication: SINUS CONGESTION
     Dosage: 1 TAB ORAL
     Route: 048
     Dates: start: 20030731, end: 20030801
  4. CLARITIN-D [Suspect]
     Indication: SINUSITIS
     Dosage: 1 TAB ORAL
     Route: 048
     Dates: start: 20030731, end: 20030801
  5. SYNTHROID [Concomitant]
  6. ADVIL [Concomitant]
  7. VANTIN [Concomitant]

REACTIONS (4)
  - DYSPNOEA [None]
  - HEART RATE INCREASED [None]
  - HYPERTENSION [None]
  - PALPITATIONS [None]
